FAERS Safety Report 5154869-6 (Version None)
Quarter: 2006Q4

REPORT INFORMATION
  Report Type: 
  Country: None (occurrence: None)
  Receive Date: 20061121
  Receipt Date: 20061116
  Transmission Date: 20070319
  Serious: Yes (Other)
  Sender: FDA-Public Use
  Company Number: JP-BAYER-200611223BYL

PATIENT
  Age: 72 Year
  Sex: Male

DRUGS (4)
  1. ADALAT [Suspect]
     Indication: HYPERTENSION
     Dosage: TOTAL DAILY DOSE: 20 MG  UNIT DOSE: 20 MG
     Route: 048
     Dates: start: 20061002, end: 20061102
  2. ASPIRIN [Concomitant]
     Dosage: TOTAL DAILY DOSE: 100 MG  UNIT DOSE: 100 MG
     Route: 048
     Dates: start: 20051001
  3. ARICEPT [Concomitant]
     Route: 048
     Dates: start: 20051001
  4. BLOPRESS [Concomitant]
     Route: 048
     Dates: start: 20051001

REACTIONS (1)
  - RHABDOMYOLYSIS [None]
